FAERS Safety Report 19889306 (Version 4)
Quarter: 2021Q4

REPORT INFORMATION
  Report Type: Spontaneous
  Country: GB (occurrence: GB)
  Receive Date: 20210927
  Receipt Date: 20211213
  Transmission Date: 20220303
  Serious: Yes (Other)
  Sender: FDA-Public Use
  Company Number: GB-THEA-THEA-2020-GB-01504

PATIENT
  Sex: Female
  Weight: 44.45 kg

DRUGS (9)
  1. BIMATOPROST\TIMOLOL [Suspect]
     Active Substance: BIMATOPROST\TIMOLOL
     Indication: Glaucoma
     Dosage: UNK
     Route: 047
  2. BIMATOPROST\TIMOLOL [Suspect]
     Active Substance: BIMATOPROST\TIMOLOL
     Indication: Ocular hypertension
  3. LATANOPROST [Suspect]
     Active Substance: LATANOPROST
     Indication: Ocular hypertension
     Dosage: NOCTE ON BOTH EYES
     Route: 047
     Dates: start: 20200115
  4. GLUCOBAY [Concomitant]
     Active Substance: ACARBOSE
     Indication: Blood disorder prophylaxis
     Dosage: 50 MG DURING LUNCH AND EVENING MEAL
     Route: 065
     Dates: start: 2020
  5. GLUCOBAY [Concomitant]
     Active Substance: ACARBOSE
     Dosage: 100 MG DURING LUNCH AND EVENING MEAL
     Route: 065
     Dates: start: 2020
  6. CARBOXYMETHYLCELLULOSE [Concomitant]
     Active Substance: CARBOXYMETHYLCELLULOSE
     Indication: Dry eye
     Dosage: UNK
     Route: 047
  7. METFORMIN [Concomitant]
     Active Substance: METFORMIN HYDROCHLORIDE
     Indication: Postprandial hypoglycaemia
     Dosage: 250 MG, QD
     Route: 065
     Dates: start: 2020
  8. ACARBOSE [Concomitant]
     Active Substance: ACARBOSE
     Indication: Blood disorder prophylaxis
     Dosage: 50 MG DURING LUNCH AND EVENING MEAL
     Route: 065
     Dates: start: 2020
  9. CARBOMER [Concomitant]
     Active Substance: CARBOMER
     Indication: Dry eye
     Dosage: UNK
     Route: 047

REACTIONS (36)
  - Diabetes mellitus [Not Recovered/Not Resolved]
  - Metamorphopsia [Not Recovered/Not Resolved]
  - Postprandial hypoglycaemia [Unknown]
  - Polydipsia [Unknown]
  - Nocturia [Not Recovered/Not Resolved]
  - Dry skin [Not Recovered/Not Resolved]
  - Therapeutic response unexpected [Unknown]
  - Vaginal discharge [Unknown]
  - Vitreous floaters [Unknown]
  - Hyperhidrosis [Unknown]
  - Weight gain poor [Not Recovered/Not Resolved]
  - Malaise [Unknown]
  - Abdominal discomfort [Unknown]
  - Polyuria [Unknown]
  - Hypercarotinaemia [Unknown]
  - Arthralgia [Unknown]
  - Urinary tract infection [Not Recovered/Not Resolved]
  - Visual impairment [Unknown]
  - Feeling hot [Unknown]
  - Dermal cyst [Not Recovered/Not Resolved]
  - Weight decreased [Not Recovered/Not Resolved]
  - Flushing [Unknown]
  - Laboratory test interference [Unknown]
  - Hyperkeratosis [Not Recovered/Not Resolved]
  - Pruritus [Not Recovered/Not Resolved]
  - Dry mouth [Not Recovered/Not Resolved]
  - Tinnitus [Unknown]
  - Skin discolouration [Not Recovered/Not Resolved]
  - Paraesthesia [Not Recovered/Not Resolved]
  - Fatigue [Unknown]
  - Palpitations [Unknown]
  - Vision blurred [Not Recovered/Not Resolved]
  - Rash [Recovered/Resolved]
  - Asthenia [Unknown]
  - Headache [Not Recovered/Not Resolved]
  - Growth of eyelashes [Not Recovered/Not Resolved]
